FAERS Safety Report 8421875-5 (Version None)
Quarter: 2012Q2

REPORT INFORMATION
  Report Type: 
  Country: None (occurrence: None)
  Receive Date: 20120608
  Receipt Date: 20120529
  Transmission Date: 20120825
  Serious: Yes (Other)
  Sender: FDA-Public Use
  Company Number: US-CELGENEUS-163-20785-12053434

PATIENT
  Sex: Female

DRUGS (1)
  1. THALOMID [Suspect]
     Dosage: 50 MILLIGRAM
     Route: 048
     Dates: start: 20120501

REACTIONS (2)
  - SEDATION [None]
  - ACTIVITIES OF DAILY LIVING IMPAIRED [None]
